FAERS Safety Report 5197263-4 (Version None)
Quarter: 2006Q4

REPORT INFORMATION
  Report Type: 
  Country: None (occurrence: None)
  Receive Date: 20061228
  Receipt Date: 20061220
  Transmission Date: 20070319
  Serious: Yes (Other)
  Sender: FDA-Public Use
  Company Number: 2006-06269

PATIENT
  Age: 83 Year
  Sex: Male

DRUGS (2)
  1. DICLOFENAC (WATSON LABORATORIES) [Suspect]
  2. CLOPIDOGREL (CLOPIDOGREL) CAPSULE [Suspect]
     Dosage: 75 MG,

REACTIONS (2)
  - DRUG INTERACTION POTENTIATION [None]
  - VITREOUS HAEMORRHAGE [None]
